FAERS Safety Report 18757177 (Version 1)
Quarter: 2021Q1

REPORT INFORMATION
  Report Type: Spontaneous
  Country: US (occurrence: US)
  Receive Date: 20210119
  Receipt Date: 20210119
  Transmission Date: 20210419
  Serious: Yes (Other)
  Sender: FDA-Public Use
  Company Number: US-MYLANLABS-2021M1002851

PATIENT
  Age: 39 Year
  Sex: Female

DRUGS (1)
  1. CLADRIBINE. [Suspect]
     Active Substance: CLADRIBINE
     Indication: RELAPSING-REMITTING MULTIPLE SCLEROSIS
     Dosage: 1.75 MILLIGRAM/KILOGRAM, CYCLE....
     Route: 048
     Dates: start: 201909

REACTIONS (2)
  - Off label use [Unknown]
  - Retinal exudates [Recovered/Resolved]

NARRATIVE: CASE EVENT DATE: 2019
